FAERS Safety Report 11180192 (Version 1)
Quarter: 2015Q2

REPORT INFORMATION
  Report Type: Spontaneous
  Country: DE (occurrence: DE)
  Receive Date: 20150611
  Receipt Date: 20150611
  Transmission Date: 20150821
  Serious: Yes (Other)
  Sender: FDA-Public Use
  Company Number: DE-ASTRAZENECA-2015SE54476

PATIENT
  Sex: Male
  Weight: 2 kg

DRUGS (1)
  1. QUETIAPINE XR [Suspect]
     Active Substance: QUETIAPINE
     Route: 064

REACTIONS (6)
  - Hypotonia [Recovered/Resolved]
  - Toxicity to various agents [Recovered/Resolved]
  - Neonatal respiratory acidosis [Recovered/Resolved]
  - Metabolic acidosis [Recovered/Resolved]
  - Hypokinesia [Recovered/Resolved]
  - Transient tachypnoea of the newborn [Unknown]
